FAERS Safety Report 10039083 (Version 1)
Quarter: 2014Q1

REPORT INFORMATION
  Report Type: Spontaneous
  Country: AU (occurrence: AU)
  Receive Date: 20140326
  Receipt Date: 20140326
  Transmission Date: 20141002
  Serious: Yes (Death)
  Sender: FDA-Public Use
  Company Number: AU-BAXTER-2014BAX014940

PATIENT
  Age: 19 Month
  Sex: Male

DRUGS (5)
  1. KIOVIG NORMAL IMMUNOGLOBULIN (HUMAN) 10G/100ML FOR INTRAVENOUS USE INJ [Suspect]
     Indication: GLYCOGEN STORAGE DISEASE TYPE II
     Route: 042
  2. KIOVIG NORMAL IMMUNOGLOBULIN (HUMAN) 10G/100ML FOR INTRAVENOUS USE INJ [Suspect]
     Indication: OFF LABEL USE
  3. RITUXIMAB [Suspect]
     Indication: GLYCOGEN STORAGE DISEASE TYPE II
     Route: 042
  4. BORTEZOMIB [Suspect]
     Indication: GLYCOGEN STORAGE DISEASE TYPE II
     Route: 042
  5. METHOTREXATE [Suspect]
     Indication: GLYCOGEN STORAGE DISEASE TYPE II
     Route: 042

REACTIONS (1)
  - Death [Fatal]
